FAERS Safety Report 19896163 (Version 1)
Quarter: 2021Q3

REPORT INFORMATION
  Report Type: Spontaneous
  Country: US (occurrence: US)
  Receive Date: 20210929
  Receipt Date: 20210929
  Transmission Date: 20211014
  Serious: Yes (Life-Threatening, Hospitalization, Other)
  Sender: FDA-Public Use
  Company Number: US-AMGEN-USASP2021145770

PATIENT
  Age: 72 Year
  Sex: Male

DRUGS (4)
  1. LEUPROLIDE [LEUPRORELIN] [Concomitant]
     Active Substance: LEUPROLIDE ACETATE
  2. XGEVA [Suspect]
     Active Substance: DENOSUMAB
     Indication: PROSTATE CANCER METASTATIC
     Dosage: UNK
     Route: 065
  3. XGEVA [Suspect]
     Active Substance: DENOSUMAB
     Indication: METASTASES TO BONE
  4. DOCETAXEL. [Concomitant]
     Active Substance: DOCETAXEL

REACTIONS (9)
  - Vitamin D decreased [Unknown]
  - Neutropenia [Unknown]
  - Fatigue [Unknown]
  - Insomnia [Unknown]
  - Somnolence [Unknown]
  - Hyporeflexia [Unknown]
  - Hypocalcaemia [Recovering/Resolving]
  - Blood parathyroid hormone increased [Unknown]
  - Hypophosphataemia [Unknown]
